FAERS Safety Report 9561056 (Version 1)
Quarter: 2013Q3

REPORT INFORMATION
  Report Type: Spontaneous
  Country: US (occurrence: US)
  Receive Date: 20130927
  Receipt Date: 20130927
  Transmission Date: 20140515
  Serious: No
  Sender: FDA-Public Use
  Company Number: US-BIOGENIDEC-2013BI056293

PATIENT
  Age: 41 Year
  Sex: Female

DRUGS (8)
  1. TECFIDERA [Suspect]
     Indication: MULTIPLE SCLEROSIS
     Route: 048
  2. LYRICA [Concomitant]
  3. LISINOPRIL [Concomitant]
  4. BACLOFEN [Concomitant]
  5. VITAMIN D SOFTEL [Concomitant]
  6. ALEVE [Concomitant]
  7. VESICARE [Concomitant]
  8. HYDROCODONE-HOMATROPINE [Concomitant]

REACTIONS (5)
  - Muscle spasms [Unknown]
  - Nausea [Not Recovered/Not Resolved]
  - Vomiting [Not Recovered/Not Resolved]
  - Abdominal pain upper [Not Recovered/Not Resolved]
  - Abdominal discomfort [Not Recovered/Not Resolved]
